FAERS Safety Report 9253063 (Version 1)
Quarter: 2013Q2

REPORT INFORMATION
  Report Type: Spontaneous
  Country: US (occurrence: US)
  Receive Date: 20130424
  Receipt Date: 20130424
  Transmission Date: 20140414
  Serious: Yes (Other)
  Sender: FDA-Public Use
  Company Number: CHPA2013US006829

PATIENT
  Age: 42 Year
  Sex: Female

DRUGS (13)
  1. EXCEDRIN MIGRAINE [Suspect]
     Indication: HEADACHE
     Dosage: UNK, UNK
     Route: 048
     Dates: start: 2006, end: 201201
  2. EXCEDRIN MIGRAINE [Suspect]
     Indication: PAIN
  3. EXCEDRIN MIGRAINE [Suspect]
     Indication: MIGRAINE
  4. EXCEDRIN EXTRA STRENGTH [Suspect]
     Dosage: UNK, UNK
     Route: 048
     Dates: start: 2006, end: 201201
  5. DOAN^S PILLS STRENGTH UNKNOWN [Suspect]
     Indication: BACK PAIN
     Dosage: UNK, UNK
     Route: 048
  6. DOAN^S PILLS STRENGTH UNKNOWN [Suspect]
     Indication: HEADACHE
  7. ZETIA [Concomitant]
     Dosage: UNK
     Dates: start: 2010
  8. METFORMIN [Concomitant]
     Dosage: UNK
     Dates: start: 2010
  9. DILTIAZEM [Concomitant]
     Dosage: UNK
     Dates: start: 2010
  10. LISINOPRIL [Concomitant]
     Dosage: UNK
     Dates: start: 2010
  11. ATENOLOL [Concomitant]
     Dosage: UNK
     Dates: start: 2010
  12. TYLENOL [Concomitant]
  13. LORATADINE [Concomitant]
     Dosage: UNK
     Dates: start: 2010

REACTIONS (2)
  - Cerebrovascular accident [Recovered/Resolved]
  - Aphasia [Recovered/Resolved]
